FAERS Safety Report 7047058-1 (Version None)
Quarter: 2010Q4

REPORT INFORMATION
  Report Type: 
  Country: None (occurrence: None)
  Receive Date: 20101015
  Receipt Date: 20101007
  Transmission Date: 20110411
  Serious: Yes (Hospitalization)
  Sender: FDA-Public Use
  Company Number: US-WYE-H18062610

PATIENT
  Sex: Male
  Weight: 96.25 kg

DRUGS (6)
  1. PRISTIQ [Suspect]
     Indication: DEPRESSION
     Route: 048
     Dates: start: 20091009, end: 20091225
  2. METFORMIN [Concomitant]
     Indication: DIABETES MELLITUS
  3. LISINOPRIL [Concomitant]
     Dosage: 20 MG, FREQUENCY NOT SPECIFIED
  4. DIVALPROEX SODIUM [Concomitant]
     Dosage: 500 MG, FREQUENCY NOT SPECIFIED
  5. LORAZEPAM [Concomitant]
     Dosage: 5 MG, FREQUENCY NOT SPECIFIED
  6. SIMVASTATIN [Concomitant]
     Dosage: UNKNOWN

REACTIONS (4)
  - DRUG WITHDRAWAL SYNDROME [None]
  - LOSS OF CONSCIOUSNESS [None]
  - SYNCOPE [None]
  - WEIGHT DECREASED [None]
